FAERS Safety Report 21672014 (Version 2)
Quarter: 2023Q1

REPORT INFORMATION
  Report Type: Spontaneous
  Country: US (occurrence: US)
  Receive Date: 20221202
  Receipt Date: 20230228
  Transmission Date: 20230417
  Serious: No
  Sender: FDA-Public Use
  Company Number: US-002147023-NVSC2022US279591

PATIENT
  Age: 56 Year
  Sex: Female

DRUGS (1)
  1. XIIDRA [Suspect]
     Active Substance: LIFITEGRAST
     Indication: Dry eye
     Dosage: 1 DRP, BID (EACH EYE)
     Route: 047
     Dates: start: 20220801, end: 20221129

REACTIONS (3)
  - Eye pain [Unknown]
  - Eyelid rash [Unknown]
  - Eye swelling [Unknown]

NARRATIVE: CASE EVENT DATE: 20221101
